FAERS Safety Report 8999993 (Version 2)
Quarter: 2013Q1

REPORT INFORMATION
  Report Type: Spontaneous
  Country: DE (occurrence: DE)
  Receive Date: 20130102
  Receipt Date: 20130131
  Transmission Date: 20140127
  Serious: Yes (Death, Life-Threatening, Other)
  Sender: FDA-Public Use
  Company Number: DE-PFIZER INC-2012330927

PATIENT
  Age: 70 Year
  Sex: Female
  Weight: 62 kg

DRUGS (4)
  1. CAMPTO [Suspect]
     Indication: COLON CANCER
     Dosage: 276 MG/L, UNK
     Route: 042
     Dates: start: 20121015, end: 20121113
  2. AVASTIN [Suspect]
     Indication: COLON CANCER
     Dosage: 1252 MG/L, UNK
     Route: 042
     Dates: start: 20121015, end: 20121106
  3. CALCIUM FOLINATE [Suspect]
     Indication: COLON CANCER
     Dosage: 520 MG/L, UNK
     Route: 042
     Dates: start: 20121015, end: 20121113
  4. 5-FU [Suspect]
     Indication: COLON CANCER
     Dosage: 3440 MG/24H, UNK
     Route: 042
     Dates: start: 20121015, end: 20121113

REACTIONS (1)
  - General physical health deterioration [Fatal]
